FAERS Safety Report 11862948 (Version 1)
Quarter: 2015Q4

REPORT INFORMATION
  Report Type: Spontaneous
  Country: US (occurrence: US)
  Receive Date: 20151223
  Receipt Date: 20151223
  Transmission Date: 20160305
  Serious: No
  Sender: FDA-Public Use
  Company Number: US-AMGEN-USASP2015135899

PATIENT
  Age: 73 Year
  Sex: Female

DRUGS (2)
  1. AMOXIN TR-K CLV [Suspect]
     Active Substance: AMOXICILLIN\CLAVULANATE POTASSIUM
     Indication: PRODUCT USED FOR UNKNOWN INDICATION
     Dosage: UNK
     Route: 065
  2. ENBREL [Suspect]
     Active Substance: ETANERCEPT
     Indication: RHEUMATOID ARTHRITIS
     Dosage: 50 MG/ML, WEEKLY
     Route: 058

REACTIONS (3)
  - Malaise [Recovered/Resolved]
  - Condition aggravated [Recovered/Resolved]
  - Systemic lupus erythematosus [None]

NARRATIVE: CASE EVENT DATE: 201511
